FAERS Safety Report 20717736 (Version 3)
Quarter: 2022Q2

REPORT INFORMATION
  Report Type: Spontaneous
  Country: ES (occurrence: ES)
  Receive Date: 20220417
  Receipt Date: 20220523
  Transmission Date: 20220721
  Serious: Yes (Hospitalization, Other)
  Sender: FDA-Public Use
  Company Number: ES-JNJFOC-20220429108

PATIENT
  Age: 20 Year
  Sex: Male

DRUGS (5)
  1. YONDELIS [Suspect]
     Active Substance: TRABECTEDIN
     Indication: Synovial sarcoma
     Route: 042
     Dates: start: 20220221
  2. YONDELIS [Suspect]
     Active Substance: TRABECTEDIN
     Dosage: CYCLE 2
     Route: 042
     Dates: start: 20220314
  3. DEXAMETHASONE [Concomitant]
     Active Substance: DEXAMETHASONE
     Indication: Product used for unknown indication
     Route: 065
  4. DEXAMETHASONE [Concomitant]
     Active Substance: DEXAMETHASONE
  5. HIBISCUS SABDARIFFA [Concomitant]
     Indication: Product used for unknown indication
     Route: 065

REACTIONS (6)
  - Hypertransaminasaemia [Recovered/Resolved]
  - Hyperbilirubinaemia [Recovered/Resolved]
  - Thrombocytopenia [Recovered/Resolved]
  - Neutropenia [Recovered/Resolved]
  - Respiratory distress [Recovered/Resolved]
  - Respiratory failure [Recovered/Resolved]

NARRATIVE: CASE EVENT DATE: 20220324
